FAERS Safety Report 18916925 (Version 1)
Quarter: 2021Q1

REPORT INFORMATION
  Report Type: Spontaneous
  Country: US (occurrence: US)
  Receive Date: 20210219
  Receipt Date: 20210219
  Transmission Date: 20210420
  Serious: Yes (Hospitalization, Disabling, Other)
  Sender: FDA-Public Use
  Company Number: US-ASTRAZENECA-2021A059993

PATIENT
  Age: 51 Year
  Sex: Female
  Weight: 55.8 kg

DRUGS (4)
  1. ZOLOFT [Concomitant]
     Active Substance: SERTRALINE HYDROCHLORIDE
     Dosage: DOSE AND FREQUENCY UNKNOWN
     Route: 048
  2. CYMBALTA [Concomitant]
     Active Substance: DULOXETINE HYDROCHLORIDE
     Dosage: 60.0MG UNKNOWN
     Route: 048
     Dates: start: 202102
  3. SEROQUEL [Suspect]
     Active Substance: QUETIAPINE FUMARATE
     Indication: DEPRESSION
     Route: 048
     Dates: start: 1991, end: 2018
  4. SEROQUEL [Suspect]
     Active Substance: QUETIAPINE FUMARATE
     Indication: INSOMNIA
     Route: 048
     Dates: start: 1991, end: 2018

REACTIONS (11)
  - Monoplegia [Unknown]
  - Parkinsonism [Unknown]
  - Peroneal nerve palsy [Unknown]
  - Depressed mood [Unknown]
  - Pain [Unknown]
  - Gait disturbance [Unknown]
  - Toothache [Unknown]
  - Weight decreased [Unknown]
  - Memory impairment [Unknown]
  - Intracranial aneurysm [Unknown]
  - Suicidal ideation [Unknown]

NARRATIVE: CASE EVENT DATE: 20090322
